FAERS Safety Report 11060182 (Version 1)
Quarter: 2015Q2

REPORT INFORMATION
  Report Type: Report from Study
  Country: US (occurrence: US)
  Receive Date: 20150423
  Receipt Date: 20150423
  Transmission Date: 20150821
  Serious: Yes (Hospitalization)
  Sender: FDA-Public Use
  Company Number: US-AMGEN-USASL2015017531

PATIENT
  Age: 62 Year
  Sex: Female
  Weight: 97.52 kg

DRUGS (1)
  1. KYPROLIS [Suspect]
     Active Substance: CARFILZOMIB
     Indication: ACUTE MYELOID LEUKAEMIA
     Dosage: 40 MG, PER CHEMO REGIM
     Route: 042
     Dates: start: 20141218, end: 20141219

REACTIONS (2)
  - Anaemia [Recovered/Resolved]
  - Pulmonary hypertension [Recovered/Resolved]

NARRATIVE: CASE EVENT DATE: 20141221
